FAERS Safety Report 6435519-5 (Version None)
Quarter: 2009Q4

REPORT INFORMATION
  Report Type: 
  Country: None (occurrence: None)
  Receive Date: 20091111
  Receipt Date: 20091105
  Transmission Date: 20100525
  Serious: Yes (Hospitalization)
  Sender: FDA-Public Use
  Company Number: US-BIOGENIDEC-2009BI001955

PATIENT
  Sex: Female

DRUGS (6)
  1. AVONEX [Suspect]
     Indication: MULTIPLE SCLEROSIS
     Route: 030
     Dates: start: 20080801
  2. AVONEX [Suspect]
     Route: 030
  3. AVONEX [Suspect]
     Route: 030
  4. AVONEX [Suspect]
     Route: 030
     Dates: end: 20090201
  5. NEXIUM [Concomitant]
  6. BENICAR [Concomitant]

REACTIONS (5)
  - BLOOD IRON DECREASED [None]
  - COLON CANCER STAGE II [None]
  - COLONIC POLYP [None]
  - INCISION SITE PAIN [None]
  - OVARIAN CYST [None]
